FAERS Safety Report 5335802-0 (Version None)
Quarter: 2007Q2

REPORT INFORMATION
  Report Type: 
  Country: None (occurrence: None)
  Receive Date: 20070322
  Receipt Date: 20061114
  Transmission Date: 20071010
  Serious: No
  Sender: FDA-Public Use
  Company Number: US-CVT-062370

PATIENT
  Age: 56 Year
  Sex: Male
  Weight: 97.5 kg

DRUGS (17)
  1. RANEXA [Suspect]
     Indication: ANGINA UNSTABLE
     Dosage: 500MG, BID; ORAL
     Route: 048
     Dates: start: 20060913
  2. ZETIA [Concomitant]
  3. ADVAIR (FLUTICASONE PROPIONATE, SALMETEROL) [Concomitant]
  4. COREG [Concomitant]
  5. K-DUR 10 [Concomitant]
  6. FLONASE (BLUTICASONE PROPIONATE) [Concomitant]
  7. PLAVIX [Concomitant]
  8. ASPIRIN [Concomitant]
  9. TOLECTIN [Concomitant]
  10. INSPRA [Concomitant]
  11. NEXIUM [Concomitant]
  12. ROBAXIN (METOCARBAMOL) [Concomitant]
  13. LIPITOR /01326101/ (ATORVASTATIN) [Concomitant]
  14. CARAFATE [Concomitant]
  15. VALIUM (00017001/ (DIAZEPAM) [Concomitant]
  16. ALBUTEROL /00139501/ (SALBUTAMOL) [Concomitant]
  17. ISMO [Concomitant]

REACTIONS (1)
  - DYSPHAGIA [None]
